FAERS Safety Report 13608072 (Version 3)
Quarter: 2017Q4

REPORT INFORMATION
  Report Type: Report from Study
  Country: US (occurrence: US)
  Receive Date: 20170602
  Receipt Date: 20171004
  Transmission Date: 20180320
  Serious: Yes (Death, Hospitalization, Other)
  Sender: FDA-Public Use
  Company Number: US-TESARO, INC-US-2017TSO00253

PATIENT

DRUGS (2)
  1. ZEJULA [Suspect]
     Active Substance: NIRAPARIB
     Indication: OVARIAN CANCER
     Dosage: 300 MG, QD
     Route: 048
     Dates: start: 201705, end: 20170511
  2. NEULASTA [Concomitant]
     Active Substance: PEGFILGRASTIM
     Indication: WHITE BLOOD CELL COUNT DECREASED
     Dosage: UNK
     Dates: start: 201601

REACTIONS (5)
  - Pancytopenia [Not Recovered/Not Resolved]
  - Febrile neutropenia [Not Recovered/Not Resolved]
  - Neutropenic sepsis [Not Recovered/Not Resolved]
  - Malaise [Unknown]
  - Death [Fatal]

NARRATIVE: CASE EVENT DATE: 201705
